FAERS Safety Report 4371765-2 (Version None)
Quarter: 2004Q2

REPORT INFORMATION
  Report Type: 
  Country: None (occurrence: None)
  Receive Date: 20040604
  Receipt Date: 20040604
  Transmission Date: 20050107
  Serious: Yes (Other)
  Sender: FDA-Public Use
  Company Number: None

PATIENT
  Age: 54 Year
  Sex: Male
  Weight: 95 kg

DRUGS (2)
  1. OXYCODONE  -TEVA (GENERIC SUSTAINED -RELEASE) [Suspect]
     Indication: PAIN
     Dosage: 80 MG PO TID
     Route: 048
     Dates: start: 20040528
  2. OXYCODONE  -TEVA (GENERIC SUSTAINED -RELEASE) [Suspect]
     Indication: POST LAMINECTOMY SYNDROME
     Dosage: 80 MG PO TID
     Route: 048
     Dates: start: 20040528

REACTIONS (2)
  - INADEQUATE ANALGESIA [None]
  - PHARMACEUTICAL PRODUCT COMPLAINT [None]
